FAERS Safety Report 4893321-X (Version None)
Quarter: 2006Q1

REPORT INFORMATION
  Report Type: 
  Country: None (occurrence: None)
  Receive Date: 20060124
  Receipt Date: 20060111
  Transmission Date: 20060701
  Serious: Yes (Death, Life-Threatening, Hospitalization)
  Sender: FDA-Public Use
  Company Number: 2005127408

PATIENT
  Age: 78 Year
  Sex: Female
  Weight: 77 kg

DRUGS (11)
  1. DOXORUBICIN HCL [Suspect]
     Indication: BREAST CANCER
     Dosage: 89 MG, DAY 1 AND 8), INTRAVENOUS
     Route: 042
     Dates: start: 20050712
  2. ALIMTA [Suspect]
     Indication: BREAST CANCER
     Dosage: 890 MG, DAY 1 AND 8, INTRAVENOUS
     Route: 042
     Dates: start: 20050712
  3. METOCLOPRAMIDE [Concomitant]
  4. TRAMADOL HCL [Concomitant]
  5. PYRALGINUM (METAMIZOLE SODIUM) [Concomitant]
  6. AMLOZEK (AMLODIPINE) [Concomitant]
  7. ACARD (ACETYLSALICYLIC ACID) [Concomitant]
  8. MORPHINE [Concomitant]
  9. FOLIC ACID [Concomitant]
  10. VITAMIN B12 [Concomitant]
  11. DEXAMETHASONE [Concomitant]

REACTIONS (15)
  - ALANINE AMINOTRANSFERASE INCREASED [None]
  - ASPARTATE AMINOTRANSFERASE INCREASED [None]
  - DEHYDRATION [None]
  - GENERAL PHYSICAL HEALTH DETERIORATION [None]
  - HYPERBILIRUBINAEMIA [None]
  - HYPOPROTEINAEMIA [None]
  - LUNG INFECTION [None]
  - METASTASES TO LIVER [None]
  - MUCOSAL INFLAMMATION [None]
  - OEDEMA PERIPHERAL [None]
  - PNEUMONIA [None]
  - RENAL FAILURE [None]
  - RESPIRATORY FAILURE [None]
  - SHOCK [None]
  - VOMITING [None]
